FAERS Safety Report 4344879-0 (Version None)
Quarter: 2004Q2

REPORT INFORMATION
  Report Type: 
  Country: None (occurrence: None)
  Receive Date: 20040423
  Receipt Date: 20031222
  Transmission Date: 20050107
  Serious: No
  Sender: FDA-Public Use
  Company Number: US-GLAXOSMITHKLINE-A0444180A

PATIENT
  Age: 83 Year
  Sex: Female

DRUGS (1)
  1. ZOFRAN [Suspect]
     Indication: ILL-DEFINED DISORDER
     Route: 065

REACTIONS (3)
  - DIARRHOEA [None]
  - NAUSEA [None]
  - VOMITING [None]
